FAERS Safety Report 24147956 (Version 2)
Quarter: 2024Q3

REPORT INFORMATION
  Report Type: Spontaneous
  Country: AT (occurrence: AT)
  Receive Date: 20240729
  Receipt Date: 20240801
  Transmission Date: 20241017
  Serious: Yes (Hospitalization, Other)
  Sender: FRESENIUS KABI
  Company Number: AT-OPELLA-2024OHG024163

PATIENT
  Age: 34 Year

DRUGS (7)
  1. ACETAMINOPHEN [Suspect]
     Active Substance: ACETAMINOPHEN
     Indication: Pyrexia
     Dosage: FORM OF ADMIN: UNKNOWN?ROUTE OF ADMIN: UNKNOWN
  2. ACETAMINOPHEN [Suspect]
     Active Substance: ACETAMINOPHEN
     Dosage: UNK?FORM OF ADMIN-UNKNOWN
  3. IBUPROFEN [Suspect]
     Active Substance: IBUPROFEN
     Indication: Pain
     Dosage: FORM OF ADMIN: UNKNOWN?ROUTE OF ADMIN: UNK
  4. IBUPROFEN [Suspect]
     Active Substance: IBUPROFEN
     Dosage: UNK?FORM OF ADMIN-UNKNOWN
  5. NOVALGIN (METAMIZOLE SODIUM) [Suspect]
     Active Substance: METAMIZOLE SODIUM
     Indication: Tonsillitis
     Dosage: DOSAGE FORM: TABLET
     Dates: end: 20240517
  6. NOVALGIN (METAMIZOLE SODIUM) [Suspect]
     Active Substance: METAMIZOLE SODIUM
     Dosage: 2-3X IN THE THREE DAYS?DOSAGE FORM: TABLET
     Dates: start: 20240518, end: 20240520
  7. AMOXICILLIN [Suspect]
     Active Substance: AMOXICILLIN
     Indication: Tonsillitis
     Dosage: UNK?FOA-UNKNOWN

REACTIONS (7)
  - Liver injury [Not Recovered/Not Resolved]
  - Pseudomonal sepsis [Unknown]
  - Leukopenia [Unknown]
  - Condition aggravated [Recovered/Resolved with Sequelae]
  - Agranulocytosis [Recovered/Resolved]
  - Fatigue [Not Recovered/Not Resolved]
  - C-reactive protein increased [Unknown]

NARRATIVE: CASE EVENT DATE: 20240101
